FAERS Safety Report 8431860-5 (Version None)
Quarter: 2012Q2

REPORT INFORMATION
  Report Type: 
  Country: None (occurrence: None)
  Receive Date: 20120613
  Receipt Date: 20120606
  Transmission Date: 20120825
  Serious: Yes (Other)
  Sender: FDA-Public Use
  Company Number: US-SANOFI-AVENTIS-2012SA030206

PATIENT
  Age: 58 Year
  Sex: Male
  Weight: 85.2 kg

DRUGS (2)
  1. ASPIRIN [Concomitant]
  2. ALLEGRA [Suspect]
     Route: 048
     Dates: start: 20120418, end: 20120427

REACTIONS (4)
  - BACK PAIN [None]
  - ABNORMAL BEHAVIOUR [None]
  - DISABILITY [None]
  - GASTROINTESTINAL DISORDER [None]
